FAERS Safety Report 24652450 (Version 3)
Quarter: 2025Q1

REPORT INFORMATION
  Report Type: Spontaneous
  Country: JP (occurrence: JP)
  Receive Date: 20241122
  Receipt Date: 20250128
  Transmission Date: 20250409
  Serious: Yes (Death, Life-Threatening, Hospitalization, Disabling, Other)
  Sender: EXELIXIS
  Company Number: JP-TAKEDA-2024TJP016650

PATIENT
  Age: 58 Year
  Sex: Male

DRUGS (1)
  1. CABOMETYX [Suspect]
     Active Substance: CABOZANTINIB S-MALATE
     Indication: Renal cancer
     Dosage: 60 MILLIGRAM, QD
     Route: 048
     Dates: start: 20240206, end: 20241104

REACTIONS (4)
  - Respiratory failure [Fatal]
  - Respiratory muscle weakness [Unknown]
  - Renal cancer [Fatal]
  - Weight decreased [Unknown]

NARRATIVE: CASE EVENT DATE: 20241103
